FAERS Safety Report 22234042 (Version 1)
Quarter: 2023Q2

REPORT INFORMATION
  Report Type: Spontaneous
  Country: IN (occurrence: IN)
  Receive Date: 20230420
  Receipt Date: 20230420
  Transmission Date: 20230722
  Serious: Yes (Other)
  Sender: FDA-Public Use
  Company Number: IN-MYLANLABS-2023M1040135

PATIENT
  Age: 70 Year
  Sex: Female

DRUGS (3)
  1. LYRICA [Suspect]
     Active Substance: PREGABALIN
     Indication: Angiopathy
     Dosage: 75 MILLIGRAM
     Route: 065
     Dates: start: 20230409
  2. MIXTARD HM [Concomitant]
     Dosage: UNK
     Route: 065
  3. ROZAVEL A [Concomitant]
     Dosage: UNK
     Route: 065
     Dates: start: 20230409

REACTIONS (3)
  - Loss of consciousness [Unknown]
  - Musculoskeletal chest pain [Unknown]
  - Dizziness [Unknown]
